FAERS Safety Report 8391868-5 (Version None)
Quarter: 2012Q2

REPORT INFORMATION
  Report Type: 
  Country: None (occurrence: None)
  Receive Date: 20120529
  Receipt Date: 20120523
  Transmission Date: 20120825
  Serious: Yes (Hospitalization)
  Sender: FDA-Public Use
  Company Number: US-GLAXOSMITHKLINE-A0967217A

PATIENT
  Age: 53 Year
  Sex: Female
  Weight: 91 kg

DRUGS (3)
  1. COUMADIN [Concomitant]
     Route: 048
  2. FLOLAN [Suspect]
     Indication: PULMONARY ARTERIAL HYPERTENSION
     Dosage: 34NGKM SEE DOSAGE TEXT
     Route: 042
     Dates: start: 20011128
  3. TRACLEER [Concomitant]
     Dosage: 125MG TWICE PER DAY

REACTIONS (1)
  - COLON CANCER STAGE IV [None]
